FAERS Safety Report 12994370 (Version 2)
Quarter: 2016Q4

REPORT INFORMATION
  Report Type: Report from Study
  Country: CA (occurrence: CA)
  Receive Date: 20161202
  Receipt Date: 20161209
  Transmission Date: 20170207
  Serious: Yes (Death)
  Sender: FDA-Public Use
  Company Number: CA-TOLMAR, INC.-2016CA012648

PATIENT

DRUGS (8)
  1. LAX-A-DAY [Concomitant]
     Dosage: 17 G, DAILY
  2. ASAPHEN [Concomitant]
     Active Substance: ASPIRIN
  3. ZYTIGA [Concomitant]
     Active Substance: ABIRATERONE ACETATE
  4. SENOKOT [Concomitant]
     Active Substance: SENNOSIDES
     Dosage: 2 TABLET PER DAY
  5. XGEVA [Concomitant]
     Active Substance: DENOSUMAB
  6. ELIGARD [Suspect]
     Active Substance: LEUPROLIDE ACETATE
     Indication: PROSTATE CANCER
     Dosage: 22.5 MG, Q3MONTHS
     Route: 065
     Dates: start: 20150302, end: 20160719
  7. CALCIUM [Concomitant]
     Active Substance: CALCIUM
     Dosage: 1500 MG, DAILY
  8. COVERSYL                           /00790702/ [Concomitant]
     Active Substance: PERINDOPRIL
     Dosage: 4 MG, DAILY
     Route: 048

REACTIONS (1)
  - Prostate cancer metastatic [Fatal]
